FAERS Safety Report 14912031 (Version 1)
Quarter: 2018Q2

REPORT INFORMATION
  Report Type: Spontaneous
  Country: MA (occurrence: MA)
  Receive Date: 20180518
  Receipt Date: 20180518
  Transmission Date: 20180711
  Serious: Yes (Other)
  Sender: FDA-Public Use
  Company Number: MA-B.I. PHARMACEUTICALS,INC./RIDGEFIELD-2018-BI-026361

PATIENT
  Age: 26 Month
  Sex: Female
  Weight: 15 kg

DRUGS (2)
  1. COMBIVENT [Suspect]
     Active Substance: ALBUTEROL SULFATE\IPRATROPIUM BROMIDE
     Indication: ASTHMA
     Dosage: DOSE: 2MG/250MCG; ROUTE: VIA A NEBULIZER
     Route: 050
  2. METHYLPREDNISOLONE. [Concomitant]
     Active Substance: METHYLPREDNISOLONE
     Indication: PRODUCT USED FOR UNKNOWN INDICATION
     Dosage: DOSE: 2MG/KG/24HR
     Route: 042

REACTIONS (2)
  - Asthma [Recovered/Resolved]
  - Respiratory distress [Recovered/Resolved]
